FAERS Safety Report 24450383 (Version 1)
Quarter: 2024Q4

REPORT INFORMATION
  Report Type: Report from Study
  Country: US (occurrence: US)
  Receive Date: 20241017
  Receipt Date: 20241017
  Transmission Date: 20250114
  Serious: Yes (Hospitalization)
  Sender: TEVA
  Company Number: US-TEVA-VS-3254662

PATIENT
  Age: 40 Year
  Sex: Female

DRUGS (1)
  1. AUSTEDO [Suspect]
     Active Substance: DEUTETRABENAZINE
     Indication: Product used for unknown indication
     Dosage: STRENGTH 12 MG XR, HS
     Route: 065
     Dates: start: 20240923, end: 20240924

REACTIONS (10)
  - Tremor [Unknown]
  - Heart rate increased [Unknown]
  - Swelling [Unknown]
  - Fall [Unknown]
  - Nausea [Unknown]
  - Chest pain [Unknown]
  - Muscle twitching [Unknown]
  - Feeling abnormal [Unknown]
  - Movement disorder [Unknown]
  - Nasal disorder [Unknown]

NARRATIVE: CASE EVENT DATE: 20240924
